FAERS Safety Report 4302653-5 (Version None)
Quarter: 2004Q1

REPORT INFORMATION
  Report Type: 
  Country: None (occurrence: None)
  Receive Date: 20040223
  Receipt Date: 20040223
  Transmission Date: 20041129
  Serious: No
  Sender: FDA-Public Use
  Company Number: None

PATIENT
  Age: 22 Year
  Sex: Female
  Weight: 72.5755 kg

DRUGS (2)
  1. TYLENOL ALLERGY AND SINUS [Suspect]
     Dosage: 02/11/04 INGESTED
  2. . [Concomitant]

REACTIONS (1)
  - CONVULSION [None]
